FAERS Safety Report 12680279 (Version 2)
Quarter: 2016Q4

REPORT INFORMATION
  Report Type: Spontaneous
  Country: US (occurrence: US)
  Receive Date: 20160824
  Receipt Date: 20161020
  Transmission Date: 20170207
  Serious: Yes (Other)
  Sender: FDA-Public Use
  Company Number: US-PFIZER INC-2016392530

PATIENT
  Age: 81 Year
  Sex: Male
  Weight: 95.25 kg

DRUGS (2)
  1. INLYTA [Suspect]
     Active Substance: AXITINIB
     Indication: RENAL CANCER
     Dosage: 5MG TABLETS BY MOUTH TWICE A DAY
     Route: 048
     Dates: start: 20160720, end: 20160729
  2. LANTUS [Concomitant]
     Active Substance: INSULIN GLARGINE
     Indication: DIABETES MELLITUS
     Dosage: UNK UNK, 1X/DAY (6-7 UNITS ONCE A DAY)

REACTIONS (5)
  - Dizziness [Recovered/Resolved]
  - Blood test abnormal [Recovered/Resolved]
  - Loss of consciousness [Recovered/Resolved]
  - Laceration [Recovered/Resolved]
  - Head injury [Recovered/Resolved]

NARRATIVE: CASE EVENT DATE: 201607
